FAERS Safety Report 9432038 (Version 2)
Quarter: 2013Q3

REPORT INFORMATION
  Report Type: Spontaneous
  Country: JP (occurrence: JP)
  Receive Date: 20130731
  Receipt Date: 20130814
  Transmission Date: 20140515
  Serious: Yes (Life-Threatening, Hospitalization)
  Sender: FDA-Public Use
  Company Number: JP-BAYER-2013-091166

PATIENT
  Age: 66 Year
  Sex: Male
  Weight: 51 kg

DRUGS (3)
  1. STIVARGA [Suspect]
     Indication: COLORECTAL CANCER
     Dosage: 160 MG, QD
     Route: 048
     Dates: start: 20130709
  2. LANSOPRAZOLE [Concomitant]
     Dosage: DAILY DOSE 30 MG
     Route: 048
     Dates: start: 20111215
  3. URSO [Concomitant]
     Dosage: DAILY DOSE 300 MG
     Route: 048
     Dates: start: 20110927, end: 20130716

REACTIONS (5)
  - Renal failure acute [Recovered/Resolved]
  - Sepsis [Recovering/Resolving]
  - C-reactive protein increased [Recovering/Resolving]
  - Disseminated intravascular coagulation [Unknown]
  - Pain [Recovering/Resolving]
